FAERS Safety Report 9162447 (Version 1)
Quarter: 2013Q1

REPORT INFORMATION
  Report Type: Spontaneous
  Country: GB (occurrence: None)
  Receive Date: 20130215
  Receipt Date: 20130215
  Transmission Date: 20140127
  Serious: Yes (Other)
  Sender: FDA-Public Use
  Company Number: AUR-APL-2013-01284

PATIENT
  Age: 41 Year
  Sex: Female
  Weight: 70 kg

DRUGS (3)
  1. SERTRALINE (SERTRALINE) (SERTRALINE) [Suspect]
     Indication: ANXIETY
     Route: 048
     Dates: start: 20110807
  2. SERTRALINE (SERTRALINE) (SERTRALINE) [Suspect]
     Indication: DEPRESSION
     Route: 048
     Dates: start: 20110807
  3. SERTRALINE (SERTRALINE) (SERTRALINE) [Suspect]
     Indication: POST-TRAUMATIC STRESS DISORDER
     Route: 048
     Dates: start: 20110807

REACTIONS (17)
  - Dyspnoea [None]
  - Asphyxia [None]
  - Viral infection [None]
  - Drug ineffective [None]
  - Post-traumatic stress disorder [None]
  - Condition aggravated [None]
  - Depression [None]
  - Anxiety [None]
  - Dry mouth [None]
  - Decreased appetite [None]
  - Weight decreased [None]
  - Flank pain [None]
  - Cough [None]
  - Insomnia [None]
  - Epistaxis [None]
  - Urinary incontinence [None]
  - Fear [None]
